FAERS Safety Report 8551699-X (Version None)
Quarter: 2012Q3

REPORT INFORMATION
  Report Type: 
  Country: None (occurrence: None)
  Receive Date: 20120730
  Receipt Date: 20120726
  Transmission Date: 20120928
  Serious: Yes (Other)
  Sender: FDA-Public Use
  Company Number: DE-B.I. PHARMACEUTICALS,INC./RIDGEFIELD-2012-DE-01751DE

PATIENT
  Age: 84 Year
  Sex: Male

DRUGS (9)
  1. PRADAXA [Suspect]
     Indication: ATRIAL FIBRILLATION
     Dosage: 220 MG
     Dates: start: 20110901
  2. RAMIPRIL [Concomitant]
     Dosage: 2.5 MG
  3. JANUVIA [Concomitant]
     Dosage: 100 MG
  4. LEVOTHYROXINE SODIUM [Concomitant]
     Dosage: 75 MG
  5. TAMSULOSIN HCL [Concomitant]
     Dosage: 0.4 MG
  6. AMIODARONE HCL [Concomitant]
     Dosage: 200 MG
  7. REPAGLINIDE [Concomitant]
     Dosage: 3 MG
  8. METOPROLOL SUCCINATE [Concomitant]
  9. TORSEMIDE [Concomitant]
     Dosage: 20 MG

REACTIONS (1)
  - APLASTIC ANAEMIA [None]
